FAERS Safety Report 23381218 (Version 9)
Quarter: 2025Q3

REPORT INFORMATION
  Report Type: Report from Study
  Country: US (occurrence: US)
  Receive Date: 20240109
  Receipt Date: 20250811
  Transmission Date: 20251021
  Serious: Yes (Hospitalization, Other)
  Sender: TAKEDA
  Company Number: US-TAKEDA-2023TUS097422

PATIENT
  Sex: Female
  Weight: 62.5 kg

DRUGS (21)
  1. LANADELUMAB [Suspect]
     Active Substance: LANADELUMAB
     Indication: Immune system disorder
     Dosage: 300 MILLIGRAM, Q2WEEKS
  2. LANADELUMAB [Suspect]
     Active Substance: LANADELUMAB
     Indication: Hereditary angioedema
  3. LANADELUMAB [Suspect]
     Active Substance: LANADELUMAB
  4. ICATIBANT [Suspect]
     Active Substance: ICATIBANT ACETATE
     Indication: Product used for unknown indication
  5. ICATIBANT [Suspect]
     Active Substance: ICATIBANT ACETATE
  6. EPINEPHRINE [Concomitant]
     Active Substance: EPINEPHRINE
  7. LORAZEPAM [Concomitant]
     Active Substance: LORAZEPAM
  8. ORLADEYO [Concomitant]
     Active Substance: BEROTRALSTAT HYDROCHLORIDE
  9. ELIQUIS [Concomitant]
     Active Substance: APIXABAN
  10. METOPROLOL SUCCINATE [Concomitant]
     Active Substance: METOPROLOL SUCCINATE
  11. LORATADINE [Concomitant]
     Active Substance: LORATADINE
  12. FISH OIL [Concomitant]
     Active Substance: FISH OIL
  13. XANAX [Concomitant]
     Active Substance: ALPRAZOLAM
  14. RITUXAN [Concomitant]
     Active Substance: RITUXIMAB
  15. RITUXIMAB [Concomitant]
     Active Substance: RITUXIMAB
  16. ONDANSETRON HYDROCHLORIDE [Concomitant]
     Active Substance: ONDANSETRON HYDROCHLORIDE
  17. VITAMIN D3 [Concomitant]
     Active Substance: CHOLECALCIFEROL
  18. TRAZODONE HCL [Concomitant]
     Active Substance: TRAZODONE HYDROCHLORIDE
  19. SODIUM FLUORIDE [Concomitant]
     Active Substance: SODIUM FLUORIDE
  20. TRIAMCINOLONE ACETONIDE [Concomitant]
     Active Substance: TRIAMCINOLONE ACETONIDE
  21. TYLENOL EXTRA STRENGTH [Concomitant]
     Active Substance: ACETAMINOPHEN

REACTIONS (22)
  - Neoplasm malignant [Unknown]
  - Palpitations [Unknown]
  - Lymphoma [Unknown]
  - Hereditary angioedema [Unknown]
  - Injection site mass [Recovered/Resolved]
  - Feeling abnormal [Recovered/Resolved]
  - Rash pruritic [Recovered/Resolved]
  - Urticaria [Recovered/Resolved]
  - Sneezing [Recovered/Resolved]
  - Fatigue [Recovered/Resolved]
  - Chills [Recovered/Resolved]
  - Abdominal pain [Unknown]
  - Nausea [Unknown]
  - Cough [Unknown]
  - Insomnia [Unknown]
  - Nasopharyngitis [Unknown]
  - Oropharyngeal discomfort [Unknown]
  - Headache [Recovered/Resolved]
  - Injection site bruising [Recovered/Resolved]
  - Injection site rash [Unknown]
  - Injection site pruritus [Unknown]
  - Dizziness [Unknown]
